FAERS Safety Report 16806125 (Version 4)
Quarter: 2021Q4

REPORT INFORMATION
  Report Type: Report from Study
  Country: US (occurrence: US)
  Receive Date: 20190913
  Receipt Date: 20211015
  Transmission Date: 20220303
  Serious: Yes (Life-Threatening, Hospitalization)
  Sender: FDA-Public Use
  Company Number: US-PFIZER INC-2019389612

PATIENT
  Age: 52 Year
  Sex: Male
  Weight: 98.5 kg

DRUGS (4)
  1. CYTARABINE [Suspect]
     Active Substance: CYTARABINE
     Indication: Acute myeloid leukaemia
     Dosage: 6.3 G, OVER 3 HOURS TWICE DAILY ON DAYS 1, 3, 5, CONSOLIDATION WITH SINGLE-AGENT
     Route: 042
     Dates: start: 20190824, end: 20190828
  2. DAUNORUBICIN [Suspect]
     Active Substance: DAUNORUBICIN
     Indication: Acute myeloid leukaemia
     Dosage: INDUCTION 1, DAILY BY CONTINUOS INFUSION
     Route: 041
     Dates: start: 20190609, end: 20190611
  3. DAUNORUBICIN [Suspect]
     Active Substance: DAUNORUBICIN
     Dosage: INDUCTION 2, DAILY BY CONTINUOS INFUSION
     Route: 041
     Dates: start: 20190629, end: 20190630
  4. PLACEBO [Suspect]
     Active Substance: UNSPECIFIED INGREDIENT
     Indication: Acute myeloid leukaemia
     Dosage: ONCE DAILY CONTINUOUS
     Route: 048
     Dates: start: 20190609, end: 20190912

REACTIONS (1)
  - Febrile neutropenia [Recovered/Resolved]

NARRATIVE: CASE EVENT DATE: 20190905
